FAERS Safety Report 7978252-0 (Version None)
Quarter: 2011Q4

REPORT INFORMATION
  Report Type: 
  Country: None (occurrence: None)
  Receive Date: 20111214
  Receipt Date: 20111209
  Transmission Date: 20120403
  Serious: Yes (Other)
  Sender: FDA-Public Use
  Company Number: JP-PFIZER INC-2011295483

PATIENT
  Age: 77 Year
  Sex: Male

DRUGS (6)
  1. CLONAZEPAM [Concomitant]
     Dosage: 0.5MG DAILY
     Route: 048
  2. MAGNESIUM OXIDE [Concomitant]
     Dosage: 330MG DAILY
     Route: 048
  3. GABAPENTIN [Suspect]
     Indication: HYPOAESTHESIA
     Dosage: 400 MG, 3X/DAY
     Route: 048
     Dates: start: 20110101
  4. NEUROTROPIN [Concomitant]
     Dosage: 16 IU DAILY
     Route: 048
  5. FAMOTIDINE [Concomitant]
     Dosage: 20MG DAILY
     Route: 048
  6. URIEF [Concomitant]
     Dosage: 4MG DAILY
     Route: 048

REACTIONS (1)
  - LOSS OF CONSCIOUSNESS [None]
